FAERS Safety Report 9049501 (Version 2)
Quarter: 2013Q1

REPORT INFORMATION
  Report Type: Spontaneous
  Country: AT (occurrence: AT)
  Receive Date: 20130205
  Receipt Date: 20130318
  Transmission Date: 20140127
  Serious: Yes (Hospitalization)
  Sender: FDA-Public Use
  Company Number: PHHY2013AT010052

PATIENT
  Sex: Female
  Weight: 85 kg

DRUGS (3)
  1. EBETREXAT [Suspect]
     Indication: RHEUMATOID ARTHRITIS
     Dosage: 25 MG, QW
     Dates: start: 201007
  2. HUMIRA [Suspect]
     Indication: RHEUMATOID ARTHRITIS
     Dosage: 40 MG, EVERY 14 DAYS
     Route: 058
     Dates: start: 201206
  3. PREDNISOLONE [Suspect]
     Dosage: 2.5 MG, UNK
     Dates: start: 201209

REACTIONS (1)
  - Fall [Recovered/Resolved]
